FAERS Safety Report 20553453 (Version 1)
Quarter: 2022Q1

REPORT INFORMATION
  Report Type: Spontaneous
  Country: US (occurrence: US)
  Receive Date: 20220304
  Receipt Date: 20220304
  Transmission Date: 20220423
  Serious: Yes (Hospitalization, Other)
  Sender: FDA-Public Use
  Company Number: US-ELI_LILLY_AND_COMPANY-US202202009282

PATIENT
  Age: 57 Year
  Sex: Female

DRUGS (1)
  1. BASAGLAR [Suspect]
     Active Substance: INSULIN GLARGINE
     Indication: Product used for unknown indication
     Dosage: 40 U, DAILY
     Route: 065
     Dates: start: 202107

REACTIONS (7)
  - Ankle fracture [Unknown]
  - Lymphoedema [Unknown]
  - Osteomyelitis [Unknown]
  - Pain in extremity [Unknown]
  - Wound [Unknown]
  - Mobility decreased [Unknown]
  - Oedema peripheral [Unknown]

NARRATIVE: CASE EVENT DATE: 20211201
